FAERS Safety Report 5492971-X (Version None)
Quarter: 2007Q4

REPORT INFORMATION
  Report Type: 
  Country: None (occurrence: None)
  Receive Date: 20071023
  Receipt Date: 20071018
  Transmission Date: 20080405
  Serious: Yes (Other)
  Sender: FDA-Public Use
  Company Number: US-BRISTOL-MYERS SQUIBB COMPANY-13947981

PATIENT
  Sex: Female

DRUGS (1)
  1. KENALOG [Suspect]
     Dates: start: 20060101

REACTIONS (4)
  - ATROPHY [None]
  - INJECTION SITE REACTION [None]
  - NECROSIS [None]
  - NERVE INJURY [None]
